FAERS Safety Report 9842920 (Version 2)
Quarter: 2014Q1

REPORT INFORMATION
  Report Type: Spontaneous
  Country: IT (occurrence: IT)
  Receive Date: 20140124
  Receipt Date: 20140129
  Transmission Date: 20141002
  Serious: Yes (Life-Threatening)
  Sender: FDA-Public Use
  Company Number: IT-ASTRAZENECA-2014SE04529

PATIENT
  Age: 47 Year
  Sex: Female

DRUGS (2)
  1. LUCEN [Suspect]
     Indication: GASTROOESOPHAGEAL REFLUX DISEASE
     Route: 048
     Dates: start: 200904
  2. LOBIVON [Concomitant]
     Indication: HYPERTENSION

REACTIONS (3)
  - Pharyngeal oedema [Recovered/Resolved]
  - Oedema mouth [Unknown]
  - Face oedema [Recovered/Resolved]
